FAERS Safety Report 5746571-4 (Version None)
Quarter: 2008Q2

REPORT INFORMATION
  Report Type: 
  Country: None (occurrence: None)
  Receive Date: 20080520
  Receipt Date: 20080520
  Transmission Date: 20081010
  Serious: Yes (Hospitalization)
  Sender: FDA-Public Use
  Company Number: None

PATIENT
  Age: 55 Year
  Sex: Male
  Weight: 157 kg

DRUGS (2)
  1. MAGNEVIST [Suspect]
     Indication: NUCLEAR MAGNETIC RESONANCE IMAGING
     Dosage: 15ML
     Dates: start: 20080501
  2. MAGNEVIST [Suspect]
     Indication: SCAN WITH CONTRAST
     Dosage: 15ML
     Dates: start: 20080501

REACTIONS (3)
  - ANGIOEDEMA [None]
  - DYSGEUSIA [None]
  - SNEEZING [None]
